FAERS Safety Report 8406400-7 (Version None)
Quarter: 2012Q2

REPORT INFORMATION
  Report Type: 
  Country: None (occurrence: None)
  Receive Date: 20120604
  Receipt Date: 20120525
  Transmission Date: 20120825
  Serious: Yes (Hospitalization)
  Sender: FDA-Public Use
  Company Number: US-US-EMD SERONO, INC.-7026009

PATIENT
  Sex: Male

DRUGS (15)
  1. CLOZAPINE [Concomitant]
     Indication: ANXIETY
  2. NORVASC [Concomitant]
     Indication: BLOOD PRESSURE
  3. LYRICA [Suspect]
     Indication: PRODUCT USED FOR UNKNOWN INDICATION
  4. NEURONTIN [Concomitant]
     Indication: NEURALGIA
  5. PROSCAR [Concomitant]
     Indication: BLOOD PRESSURE
  6. REBIF [Suspect]
     Indication: MULTIPLE SCLEROSIS
     Route: 058
     Dates: start: 20021027
  7. ZOLOFT [Concomitant]
     Indication: DEPRESSION
  8. GLUCATROL [Concomitant]
     Indication: DIABETES MELLITUS
  9. ACETAMINOPHEN [Concomitant]
     Indication: PAIN
  10. IBUPROFEN (ADVIL) [Suspect]
     Indication: PAIN
     Dates: end: 20100101
  11. MIRAPEX [Concomitant]
     Indication: RESTLESS LEGS SYNDROME
  12. WELLBUTRIN [Concomitant]
     Indication: DEPRESSION
     Dosage: 150MG-200MG
  13. LISINOPRIL [Concomitant]
     Indication: BLOOD PRESSURE
  14. SEROQUEL [Concomitant]
     Indication: BIPOLAR DISORDER
  15. LAMICTAL [Concomitant]
     Indication: DEPRESSION

REACTIONS (4)
  - FATIGUE [None]
  - RENAL FAILURE ACUTE [None]
  - CONSTIPATION [None]
  - BLOOD GLUCOSE DECREASED [None]
